FAERS Safety Report 10533497 (Version 2)
Quarter: 2014Q4

REPORT INFORMATION
  Report Type: Report from Study
  Country: MU (occurrence: MU)
  Receive Date: 20141022
  Receipt Date: 20141022
  Transmission Date: 20150529
  Serious: Yes (Death, Other)
  Sender: FDA-Public Use
  Company Number: PHHY2014MU050153

PATIENT
  Sex: Male

DRUGS (3)
  1. GLIVEC [Suspect]
     Active Substance: IMATINIB MESYLATE
     Indication: GASTROINTESTINAL STROMAL TUMOUR
     Dosage: 400 MG, UNK
     Route: 065
  2. GLIVEC [Suspect]
     Active Substance: IMATINIB MESYLATE
     Dosage: 600 MG, UNK
     Route: 065
  3. GLIVEC [Suspect]
     Active Substance: IMATINIB MESYLATE
     Dosage: 500 MG, UNK
     Route: 065

REACTIONS (3)
  - Malignant neoplasm progression [Unknown]
  - Death [Fatal]
  - Gastrointestinal stromal tumour [Unknown]
